FAERS Safety Report 5892503-8 (Version None)
Quarter: 2008Q3

REPORT INFORMATION
  Report Type: 
  Country: None (occurrence: None)
  Receive Date: 20080923
  Receipt Date: 20080912
  Transmission Date: 20090109
  Serious: Yes (Hospitalization)
  Sender: FDA-Public Use
  Company Number: ES-ABBOTT-08P-144-0476007-00

PATIENT
  Age: 40 Year
  Sex: Male

DRUGS (4)
  1. HUMIRA [Suspect]
     Indication: CROHN'S DISEASE
     Route: 058
     Dates: start: 20080801, end: 20080801
  2. HUMIRA [Suspect]
  3. HUMIRA [Suspect]
     Dates: end: 20080910
  4. CORTICOID [Suspect]
     Indication: CROHN'S DISEASE
     Dosage: 60 MG DAILY
     Route: 048
     Dates: end: 20080910

REACTIONS (3)
  - HYPOREFLEXIA [None]
  - MUSCULAR WEAKNESS [None]
  - MYOSITIS [None]
